FAERS Safety Report 6314917-4 (Version None)
Quarter: 2009Q3

REPORT INFORMATION
  Report Type: 
  Country: None (occurrence: None)
  Receive Date: 20090819
  Receipt Date: 20090812
  Transmission Date: 20100115
  Serious: Yes (Other)
  Sender: FDA-Public Use
  Company Number: A0791599A

PATIENT
  Sex: Female

DRUGS (5)
  1. VALTREX [Suspect]
     Indication: HERPES VIRUS INFECTION
     Dosage: 1G TWICE PER DAY
     Route: 048
     Dates: start: 20080801
  2. VICODIN [Concomitant]
  3. DIFLUCAN [Concomitant]
  4. MULTI-VITAMIN [Concomitant]
  5. VITAMIN B COMPLEX CAP [Concomitant]

REACTIONS (6)
  - ABNORMAL DREAMS [None]
  - DRUG INEFFECTIVE [None]
  - HALLUCINATION [None]
  - INCORRECT DOSE ADMINISTERED [None]
  - OVERDOSE [None]
  - PAIN [None]
